FAERS Safety Report 10031832 (Version 2)
Quarter: 2014Q2

REPORT INFORMATION
  Report Type: Spontaneous
  Country: US (occurrence: US)
  Receive Date: 20140324
  Receipt Date: 20140509
  Transmission Date: 20141212
  Serious: Yes (Other)
  Sender: FDA-Public Use
  Company Number: US-PFIZER INC-2014083430

PATIENT
  Sex: Male

DRUGS (2)
  1. LIPITOR [Suspect]
     Dosage: 40 MG (BY TAKING TWO 20MG TABLETS), ONCE A DAY
  2. LIPITOR [Suspect]
     Dosage: 20 MG, ONCE A DAY

REACTIONS (1)
  - Myocardial infarction [Unknown]
